FAERS Safety Report 6427232-5 (Version None)
Quarter: 2009Q4

REPORT INFORMATION
  Report Type: 
  Country: None (occurrence: None)
  Receive Date: 20091104
  Receipt Date: 20091030
  Transmission Date: 20100525
  Serious: Yes (Other)
  Sender: FDA-Public Use
  Company Number: A0814209A

PATIENT
  Age: 49 Year
  Sex: Female

DRUGS (2)
  1. AMERGE [Suspect]
     Indication: MIGRAINE
     Dosage: 1TAB AS REQUIRED
     Route: 048
     Dates: start: 20031001
  2. NO CONCURRENT MEDICATION [Concomitant]

REACTIONS (2)
  - ANAEMIA [None]
  - HYPERTHYROIDISM [None]
